FAERS Safety Report 5931853-3 (Version None)
Quarter: 2008Q4

REPORT INFORMATION
  Report Type: 
  Country: None (occurrence: None)
  Receive Date: 20081027
  Receipt Date: 20081020
  Transmission Date: 20090506
  Serious: Yes (Hospitalization)
  Sender: FDA-Public Use
  Company Number: HK-SANOFI-SYNTHELABO-F01200801603

PATIENT
  Sex: Male

DRUGS (8)
  1. XELODA [Suspect]
     Dosage: UNK
     Route: 048
  2. TELBIVUDINE [Concomitant]
     Dosage: 600 MG
     Route: 048
  3. VITAMIN B6 [Concomitant]
     Route: 048
  4. ESSENTIALE [Concomitant]
     Dosage: 1 MG
     Route: 048
  5. DEXAMETHASONE 4MG TAB [Concomitant]
     Dosage: 4 MG
     Route: 048
  6. ADEFOVIR DIPIVOXIL KIT [Concomitant]
     Dosage: 10 MG
     Route: 048
  7. OXALIPLATIN [Suspect]
     Indication: HEPATIC NEOPLASM MALIGNANT
     Dosage: UNK
     Route: 041
  8. SORAFENIB [Suspect]
     Dosage: 800 MG
     Route: 048
     Dates: start: 20080818, end: 20081017

REACTIONS (1)
  - HEMIANOPIA [None]
